FAERS Safety Report 8560736 (Version 4)
Quarter: 2013Q1

REPORT INFORMATION
  Report Type: Report from Study
  Country: US (occurrence: US)
  Receive Date: 20120514
  Receipt Date: 20130102
  Transmission Date: 20140127
  Serious: Yes (Hospitalization)
  Sender: FDA-Public Use
  Company Number: US-ROCHE-1034414

PATIENT
  Sex: Female
  Weight: 64.92 kg

DRUGS (7)
  1. VEMURAFENIB [Suspect]
     Indication: METASTATIC MALIGNANT MELANOMA
     Dosage: TWO 240 MG TABS
     Route: 050
  2. AMIODARONE [Concomitant]
  3. AZITHROMYCIN [Concomitant]
  4. PREDNISONE [Concomitant]
     Dosage: EVERY OTHER DAY
     Route: 050
  5. XANAX [Concomitant]
     Dosage: SPARINGLY
     Route: 050
  6. CELEXA [Concomitant]
  7. ELAVIL [Concomitant]

REACTIONS (17)
  - Myocardial infarction [Unknown]
  - Anaemia [Unknown]
  - Hypercholesterolaemia [Unknown]
  - Myocardial ischaemia [Unknown]
  - Hypertension [Unknown]
  - Flushing [Unknown]
  - Eye irritation [Unknown]
  - Arthralgia [Recovered/Resolved]
  - Local swelling [Unknown]
  - Mass [Unknown]
  - Decreased appetite [Unknown]
  - Ageusia [Unknown]
  - Vomiting [Unknown]
  - Fatigue [Unknown]
  - Pruritus [Unknown]
  - Alopecia [Unknown]
  - Visual impairment [Unknown]
